FAERS Safety Report 6236128-3 (Version None)
Quarter: 2009Q2

REPORT INFORMATION
  Report Type: 
  Country: None (occurrence: None)
  Receive Date: 20090619
  Receipt Date: 20090609
  Transmission Date: 20091009
  Serious: Yes (Hospitalization, Other)
  Sender: FDA-Public Use
  Company Number: FR-PFIZER INC-2009224407

PATIENT
  Age: 74 Year

DRUGS (12)
  1. SUTENT [Interacting]
     Indication: RENAL CANCER
     Dosage: 50 MG, 1X/DAY, 4 WEEKS OUT OF 6
     Route: 048
     Dates: start: 20090429
  2. TRIFLUCAN [Suspect]
     Indication: MYCOSIS FUNGOIDES
     Dosage: 100 MG, 1X/DAY
     Route: 048
     Dates: start: 20090429
  3. COUMADIN [Interacting]
     Indication: THROMBOSIS PROPHYLAXIS
     Dosage: ACCORDING TO INR
     Route: 048
     Dates: start: 20080101, end: 20090518
  4. COUMADIN [Interacting]
     Dosage: ACCORDING TO INR
     Route: 048
     Dates: start: 20090520, end: 20090524
  5. KARDEGIC [Interacting]
     Indication: THROMBOSIS PROPHYLAXIS
     Dosage: 75 MG, 1X/DAY
     Route: 048
  6. CORDARONE [Interacting]
     Indication: ATRIAL FIBRILLATION
     Dosage: 100 MG, 1X/DAY
     Route: 048
     Dates: start: 20080101
  7. CRESTOR [Interacting]
     Indication: HYPERCHOLESTEROLAEMIA
     Dosage: 20 MG, 1X/DAY
     Route: 048
     Dates: end: 20090519
  8. DETENSIEL [Concomitant]
     Dosage: 10 MG, 1X/DAY
  9. PERINDOPRIL ERBUMINE [Concomitant]
     Dosage: 5 MG, 1X/DAY
  10. EZETROL [Concomitant]
     Dosage: 10 MG, 1X/DAY
  11. GLUCOR [Concomitant]
     Dosage: 250 MG, 1X/DAY
  12. DAONIL [Concomitant]
     Dosage: UNK

REACTIONS (3)
  - DRUG INTERACTION [None]
  - GINGIVAL BLEEDING [None]
  - HAEMOPTYSIS [None]
